FAERS Safety Report 5716168-0 (Version None)
Quarter: 2008Q2

REPORT INFORMATION
  Report Type: 
  Country: None (occurrence: None)
  Receive Date: 20080424
  Receipt Date: 20080417
  Transmission Date: 20081010
  Serious: Yes (Other)
  Sender: FDA-Public Use
  Company Number: PHEH2008US03858

PATIENT
  Age: 67 Year
  Sex: Male
  Weight: 127.89 kg

DRUGS (5)
  1. ZOMETA [Suspect]
     Indication: METASTASES TO BONE
     Dosage: 4 MG, UNK
     Route: 042
     Dates: start: 20080331
  2. CASODEX [Concomitant]
     Dosage: 50 MG, UNK
  3. VIAGRA [Concomitant]
     Dosage: 100 MG, PRN
  4. MULTIVITAMINS WITH MINERALS [Concomitant]
  5. LUPRON - SLOW RELEASE [Concomitant]
     Dosage: UNK, Q3MO
     Route: 030

REACTIONS (14)
  - ARTHRALGIA [None]
  - BLOOD GLUCOSE ABNORMAL [None]
  - CARBON DIOXIDE INCREASED [None]
  - CHILLS [None]
  - DIZZINESS [None]
  - FATIGUE [None]
  - GAIT DISTURBANCE [None]
  - HAEMATOCRIT DECREASED [None]
  - HEADACHE [None]
  - LETHARGY [None]
  - LYMPHOCYTE COUNT DECREASED [None]
  - MALAISE [None]
  - MEAN CELL VOLUME DECREASED [None]
  - WHITE BLOOD CELL COUNT DECREASED [None]
